FAERS Safety Report 18634709 (Version 1)
Quarter: 2020Q4

REPORT INFORMATION
  Report Type: Spontaneous
  Country: US (occurrence: US)
  Receive Date: 20201218
  Receipt Date: 20201218
  Transmission Date: 20210114
  Serious: No
  Sender: FDA-Public Use
  Company Number: US-GALDERMA-US2020032267

PATIENT
  Age: 25 Year
  Sex: Female

DRUGS (10)
  1. PROACTIV MD DEEP CLEANSING FACE WASH [Concomitant]
     Active Substance: COSMETICS
     Indication: SKIN IRRITATION
  2. PROACTIV MD DAILY OIL CONTROL SPF 30 [Suspect]
     Active Substance: AVOBENZONE\OCTISALATE\OCTOCRYLENE
     Indication: ERYTHEMA
     Route: 061
     Dates: start: 202002, end: 202002
  3. PROACTIV MD DAILY OIL CONTROL SPF 30 [Suspect]
     Active Substance: AVOBENZONE\OCTISALATE\OCTOCRYLENE
     Indication: SKIN IRRITATION
  4. PROACTIV EYE BRIGHTENING SERUM [Concomitant]
     Active Substance: COSMETICS
     Indication: ERYTHEMA
     Route: 061
     Dates: start: 202002, end: 202002
  5. PROACTIV MD BALANCING TONER [Concomitant]
     Active Substance: COSMETICS
     Indication: SKIN IRRITATION
  6. PROACTIV MD ADAPALENE ACNE TREATMENT [Suspect]
     Active Substance: ADAPALENE
     Indication: ERYTHEMA
     Dosage: 0.1%
     Route: 061
     Dates: start: 202002, end: 202002
  7. PROACTIV MD DEEP CLEANSING FACE WASH [Concomitant]
     Active Substance: COSMETICS
     Indication: ERYTHEMA
     Route: 061
     Dates: start: 202002, end: 202002
  8. PROACTIV EYE BRIGHTENING SERUM [Concomitant]
     Active Substance: COSMETICS
     Indication: SKIN IRRITATION
  9. PROACTIV MD ADAPALENE ACNE TREATMENT [Suspect]
     Active Substance: ADAPALENE
     Indication: SKIN IRRITATION
  10. PROACTIV MD BALANCING TONER [Concomitant]
     Active Substance: COSMETICS
     Indication: ERYTHEMA
     Route: 061
     Dates: start: 202002, end: 202002

REACTIONS (4)
  - Rash [Recovered/Resolved]
  - Product use in unapproved indication [Recovered/Resolved]
  - Product use issue [Recovered/Resolved]
  - Sensitive skin [Recovered/Resolved]

NARRATIVE: CASE EVENT DATE: 202002
